FAERS Safety Report 16821595 (Version 6)
Quarter: 2020Q1

REPORT INFORMATION
  Report Type: Spontaneous
  Country: IL (occurrence: IL)
  Receive Date: 20190918
  Receipt Date: 20200207
  Transmission Date: 20200409
  Serious: Yes (Death, Hospitalization, Other)
  Sender: FDA-Public Use
  Company Number: IL-ACTELION-A-CH2019-191508

PATIENT
  Age: 87 Year
  Sex: Female
  Weight: 87 kg

DRUGS (12)
  1. IKAPRESS [Suspect]
     Active Substance: VERAPAMIL HYDROCHLORIDE
     Indication: PRODUCT USED FOR UNKNOWN INDICATION
     Route: 065
  2. UPTRAVI [Suspect]
     Active Substance: SELEXIPAG
     Dosage: 200 MCG, BID
     Route: 048
     Dates: start: 20190522, end: 20190530
  3. ESCITALOPRAM [Suspect]
     Active Substance: ESCITALOPRAM OXALATE
     Indication: PRODUCT USED FOR UNKNOWN INDICATION
     Route: 065
  4. ALDACTONE [Concomitant]
     Active Substance: SPIRONOLACTONE
  5. COUMADIN [Concomitant]
     Active Substance: WARFARIN SODIUM
  6. OXYGEN. [Concomitant]
     Active Substance: OXYGEN
  7. LANTON [Concomitant]
  8. VITA CALCEA [Concomitant]
  9. FUSID [Concomitant]
  10. ADEMPAS [Concomitant]
     Active Substance: RIOCIGUAT
  11. UPTRAVI [Suspect]
     Active Substance: SELEXIPAG
     Indication: PULMONARY HYPERTENSION
     Dosage: 400 MCG, BID
     Route: 048
     Dates: start: 20190530
  12. UPTRAVI [Suspect]
     Active Substance: SELEXIPAG
     Dosage: 1600 MCG, BID
     Route: 048
     Dates: end: 20200120

REACTIONS (20)
  - Confusional state [Unknown]
  - Pulmonary hypertension [Fatal]
  - Pulmonary arterial pressure increased [Unknown]
  - Blood creatinine increased [Unknown]
  - Urinary incontinence [Unknown]
  - Renal failure [Unknown]
  - Hyponatraemia [Unknown]
  - Chest pain [Recovered/Resolved with Sequelae]
  - Bradycardia [Unknown]
  - Urinary retention [Recovering/Resolving]
  - Palpitations [Recovered/Resolved with Sequelae]
  - Asthenia [Unknown]
  - Hypotension [Recovered/Resolved]
  - Hepatic enzyme increased [Unknown]
  - Bladder catheterisation [Unknown]
  - Back pain [Recovering/Resolving]
  - Pancreatic cyst [Unknown]
  - Spondylolisthesis [Recovering/Resolving]
  - Atrial fibrillation [Recovered/Resolved with Sequelae]
  - Pallor [Unknown]

NARRATIVE: CASE EVENT DATE: 20190907
